FAERS Safety Report 24079520 (Version 2)
Quarter: 2025Q1

REPORT INFORMATION
  Report Type: Spontaneous
  Country: US (occurrence: US)
  Receive Date: 20240711
  Receipt Date: 20250113
  Transmission Date: 20250409
  Serious: No
  Sender: BRISTOL-MYERS SQUIBB COMPANY
  Company Number: US-BRISTOL-MYERS SQUIBB COMPANY-2024-110044

PATIENT
  Age: 51 Year
  Sex: Female

DRUGS (2)
  1. THALOMID [Suspect]
     Active Substance: THALIDOMIDE
     Indication: Systemic lupus erythematosus
     Dates: start: 20210930
  2. THALOMID [Suspect]
     Active Substance: THALIDOMIDE
     Dates: start: 20150609

REACTIONS (2)
  - Artificial menopause [Unknown]
  - Off label use [Unknown]
